FAERS Safety Report 9788356 (Version 1)
Quarter: 2013Q4

REPORT INFORMATION
  Report Type: Other
  Country: US (occurrence: US)
  Receive Date: 20131230
  Receipt Date: 20131230
  Transmission Date: 20140711
  Serious: Yes (Hospitalization)
  Sender: FDA-Public Use
  Company Number: US-SHIRE-ALL1-2013-09006

PATIENT
  Age: 17 Year
  Sex: Female
  Weight: 63.49 kg

DRUGS (2)
  1. VYVANSE [Suspect]
     Indication: ATTENTION DEFICIT/HYPERACTIVITY DISORDER
     Dosage: 30 MG, 1X/DAY:QD
     Route: 048
     Dates: start: 2008
  2. MULTI-VIT [Concomitant]
     Indication: ROUTINE HEALTH MAINTENANCE
     Dosage: UNK, 1X/DAY:QD
     Route: 048

REACTIONS (8)
  - Depression [Recovered/Resolved]
  - Drug withdrawal syndrome [Not Recovered/Not Resolved]
  - Disturbance in attention [Not Recovered/Not Resolved]
  - Drug withdrawal headache [Not Recovered/Not Resolved]
  - Appetite disorder [Not Recovered/Not Resolved]
  - Abdominal pain [Not Recovered/Not Resolved]
  - Somnolence [Not Recovered/Not Resolved]
  - Drug dose omission [Not Recovered/Not Resolved]
